FAERS Safety Report 5384185-9 (Version None)
Quarter: 2007Q3

REPORT INFORMATION
  Report Type: 
  Country: None (occurrence: None)
  Receive Date: 20070711
  Receipt Date: 20070710
  Transmission Date: 20080115
  Serious: Yes (Hospitalization, Congenital Anomaly)
  Sender: FDA-Public Use
  Company Number: A0662598A

PATIENT
  Sex: Female

DRUGS (1)
  1. PAXIL [Suspect]
     Indication: DRUG USE FOR UNKNOWN INDICATION
     Dates: start: 20000101

REACTIONS (12)
  - ATRIOVENTRICULAR BLOCK COMPLETE [None]
  - CAESAREAN SECTION [None]
  - CARDIAC DISORDER [None]
  - CARDIAC PERFORATION [None]
  - CARDIAC VALVE DISEASE [None]
  - DRUG EXPOSURE DURING PREGNANCY [None]
  - HEART RATE DECREASED [None]
  - HEART RATE IRREGULAR [None]
  - HEART VALVE INCOMPETENCE [None]
  - PAIN [None]
  - PREMATURE BABY [None]
  - TRANSPOSITION OF THE GREAT VESSELS [None]
